FAERS Safety Report 14074862 (Version 1)
Quarter: 2017Q4

REPORT INFORMATION
  Report Type: Spontaneous
  Country: US (occurrence: US)
  Receive Date: 20171010
  Receipt Date: 20171010
  Transmission Date: 20180321
  Serious: Yes (Other)
  Sender: FDA-Public Use
  Company Number: US-NEUROCRINE BIOSCIENCES INC.-2017NBI01070

PATIENT
  Age: 68 Year
  Sex: Female
  Weight: 82.63 kg

DRUGS (21)
  1. LATANOPROST. [Concomitant]
     Active Substance: LATANOPROST
     Indication: GLAUCOMA
  2. LAMOTRIGINE. [Concomitant]
     Active Substance: LAMOTRIGINE
     Indication: MOOD SWINGS
  3. ASPIRIN. [Concomitant]
     Active Substance: ASPIRIN
  4. POTASSIUM CITRATE. [Concomitant]
     Active Substance: POTASSIUM CITRATE
     Indication: BLOOD POTASSIUM DECREASED
  5. TYLENOL [Concomitant]
     Active Substance: ACETAMINOPHEN
     Indication: BACK PAIN
  6. LOSARTAN. [Concomitant]
     Active Substance: LOSARTAN
  7. FOLIC ACID. [Concomitant]
     Active Substance: FOLIC ACID
  8. IRON [Concomitant]
     Active Substance: IRON
  9. OMEPRAZOLE. [Concomitant]
     Active Substance: OMEPRAZOLE
     Indication: GASTROOESOPHAGEAL REFLUX DISEASE
  10. DILTIAZEM XR [Concomitant]
     Active Substance: DILTIAZEM
     Indication: CARDIAC DISORDER
  11. VITAMIN D3 [Concomitant]
     Active Substance: CHOLECALCIFEROL
  12. CALCIUM [Concomitant]
     Active Substance: CALCIUM
  13. ATORVASTATIN [Concomitant]
     Active Substance: ATORVASTATIN
     Indication: CARDIAC DISORDER
  14. TRAZODONE [Concomitant]
     Active Substance: TRAZODONE HYDROCHLORIDE
     Indication: INSOMNIA
  15. INGREZZA [Suspect]
     Active Substance: VALBENAZINE
     Indication: TARDIVE DYSKINESIA
     Route: 048
     Dates: start: 2017
  16. ATIVAN [Concomitant]
     Active Substance: LORAZEPAM
  17. BRIMONIDINE TARTRATE. [Concomitant]
     Active Substance: BRIMONIDINE TARTRATE
  18. LANTUS [Concomitant]
     Active Substance: INSULIN GLARGINE
  19. MULTIVITAMIN [Concomitant]
     Active Substance: VITAMINS
  20. SERTRALINE [Concomitant]
     Active Substance: SERTRALINE HYDROCHLORIDE
     Indication: DEPRESSION
  21. VITAMIN B12 [Concomitant]
     Active Substance: CYANOCOBALAMIN

REACTIONS (3)
  - Drug effect decreased [Recovering/Resolving]
  - Malignant melanoma [Recovered/Resolved]
  - Weight increased [Recovering/Resolving]

NARRATIVE: CASE EVENT DATE: 201707
